FAERS Safety Report 22653176 (Version 1)
Quarter: 2023Q2

REPORT INFORMATION
  Report Type: Spontaneous
  Country: DE (occurrence: DE)
  Receive Date: 20230629
  Receipt Date: 20230629
  Transmission Date: 20230721
  Serious: Yes (Other)
  Sender: FDA-Public Use
  Company Number: DE-BEH-2023160406

PATIENT
  Age: 70 Year
  Sex: Female

DRUGS (2)
  1. HUMAN IMMUNOGLOBULIN G [Suspect]
     Active Substance: HUMAN IMMUNOGLOBULIN G
     Indication: Lichen myxoedematosus
     Dosage: 2 GRAM/KG AT INTERVALS OF 5 WEEKS
     Route: 042
  2. LEVETIRACETAM [Suspect]
     Active Substance: LEVETIRACETAM

REACTIONS (4)
  - Lichen myxoedematosus [Unknown]
  - Therapy interrupted [Unknown]
  - No adverse event [Unknown]
  - Off label use [Unknown]
